FAERS Safety Report 25534282 (Version 1)
Quarter: 2025Q3

REPORT INFORMATION
  Report Type: Spontaneous
  Country: US (occurrence: None)
  Receive Date: 20250708
  Receipt Date: 20250708
  Transmission Date: 20251021
  Serious: Yes (Other)
  Sender: FDA-CTU
  Company Number: None

PATIENT
  Age: 55 Year
  Sex: Male

DRUGS (1)
  1. JARDIANCE [Suspect]
     Active Substance: EMPAGLIFLOZIN
     Dosage: FREQUENCY : TWICE A DAY;?

REACTIONS (7)
  - Basal cell carcinoma [None]
  - Dizziness [None]
  - Blood pressure fluctuation [None]
  - Sinusitis [None]
  - Infection [None]
  - Condition aggravated [None]
  - Dental operation [None]
